FAERS Safety Report 8270588-1 (Version None)
Quarter: 2012Q1

REPORT INFORMATION
  Report Type: 
  Country: None (occurrence: None)
  Receive Date: 20120327
  Receipt Date: 20100510
  Transmission Date: 20120608
  Serious: Yes (Hospitalization, Other)
  Sender: FDA-Public Use
  Company Number: PHHY2010US06331

PATIENT
  Age: 58 Year
  Sex: Male

DRUGS (3)
  1. INTEGRIN (OXYPERTINE HYDROCHLORIDE) [Concomitant]
  2. GLEEVEC [Suspect]
     Indication: GASTROINTESTINAL STROMAL TUMOUR
     Dosage: 600 MG, QD, ORAL
     Route: 048
     Dates: start: 20091214
  3. HYDROCODONE BITARTRATE [Concomitant]

REACTIONS (9)
  - ANAEMIA [None]
  - TRANSFUSION [None]
  - VOMITING [None]
  - ASTHENIA [None]
  - NAUSEA [None]
  - SWELLING FACE [None]
  - RED BLOOD CELL COUNT DECREASED [None]
  - PYREXIA [None]
  - DYSPNOEA [None]
